FAERS Safety Report 9568990 (Version 1)
Quarter: 2013Q3

REPORT INFORMATION
  Report Type: Spontaneous
  Country: US (occurrence: US)
  Receive Date: 20130930
  Receipt Date: 20130930
  Transmission Date: 20140515
  Serious: No
  Sender: FDA-Public Use
  Company Number: US-AMGEN-USASP2013061030

PATIENT
  Age: 60 Year
  Sex: Female

DRUGS (1)
  1. ENBREL [Suspect]
     Indication: OSTEOARTHRITIS
     Dosage: 50 MG, QWK
     Route: 065
     Dates: start: 20130103, end: 20130815

REACTIONS (3)
  - Rhinorrhoea [Not Recovered/Not Resolved]
  - Photophobia [Not Recovered/Not Resolved]
  - Sinusitis [Not Recovered/Not Resolved]
